FAERS Safety Report 8760907 (Version 1)
Quarter: 2012Q4

REPORT INFORMATION
  Report Type: Report from Study
  Country: US (occurrence: US)
  Receive Date: 20120830
  Receipt Date: 20120830
  Transmission Date: 20130627
  Serious: Yes (Hospitalization, Other)
  Sender: FDA-Public Use
  Company Number: US-JNJFOC-20120810892

PATIENT
  Age: 34 Year
  Sex: Male
  Weight: 112.04 kg

DRUGS (2)
  1. INFLIXIMAB, RECOMBINANT [Suspect]
     Indication: PSORIASIS
     Route: 042
     Dates: start: 200210
  2. ETANERCEPT [Concomitant]
     Dates: start: 200201

REACTIONS (1)
  - White blood cell count increased [Recovered/Resolved]
